FAERS Safety Report 7440646-X (Version None)
Quarter: 2011Q2

REPORT INFORMATION
  Report Type: 
  Country: None (occurrence: None)
  Receive Date: 20110427
  Receipt Date: 20110419
  Transmission Date: 20111010
  Serious: Yes (Other)
  Sender: FDA-Public Use
  Company Number: DE-BAXTER-2011BH012302

PATIENT
  Age: 81 Year
  Sex: Female

DRUGS (4)
  1. PREDNISONE [Suspect]
     Indication: NON-HODGKIN'S LYMPHOMA
     Route: 048
  2. VINCRISTINE SULFATE [Suspect]
     Indication: NON-HODGKIN'S LYMPHOMA
     Route: 042
  3. PIXANTRONE [Suspect]
     Indication: NON-HODGKIN'S LYMPHOMA
     Route: 065
  4. CYCLOPHOSPHAMIDE [Suspect]
     Indication: NON-HODGKIN'S LYMPHOMA
     Route: 042

REACTIONS (3)
  - CARDIAC FAILURE [None]
  - NEUTROPENIA [None]
  - ATRIAL FIBRILLATION [None]
